FAERS Safety Report 24527843 (Version 1)
Quarter: 2024Q4

REPORT INFORMATION
  Report Type: Spontaneous
  Country: DE (occurrence: DE)
  Receive Date: 20241021
  Receipt Date: 20241021
  Transmission Date: 20250115
  Serious: Yes (Hospitalization)
  Sender: CELLTRION
  Company Number: DE-CELLTRION INC.-2024DE025072

PATIENT

DRUGS (7)
  1. INFLIXIMAB [Suspect]
     Active Substance: INFLIXIMAB
     Indication: Product used for unknown indication
     Dosage: UNK
     Route: 065
     Dates: start: 202312, end: 202402
  2. METHOTREXATE SODIUM [Concomitant]
     Active Substance: METHOTREXATE SODIUM
  3. ORENCIA [Concomitant]
     Active Substance: ABATACEPT
     Dosage: 125 MILLIGRAM
     Dates: start: 20230515, end: 202309
  4. HYRIMOZ [Concomitant]
     Active Substance: ADALIMUMAB-ADAZ
     Dosage: 40 MILLIGRAM
     Dates: start: 20210413, end: 202203
  5. ETANERCEPT [Concomitant]
     Active Substance: ETANERCEPT
     Dosage: 50 MILLIGRAM
     Dates: start: 20220328, end: 202204
  6. XELJANZ [Concomitant]
     Active Substance: TOFACITINIB CITRATE
     Dosage: 11 MILLIGRAM
     Dates: start: 20221107, end: 202303
  7. ENBREL [Concomitant]
     Active Substance: ETANERCEPT
     Dosage: 25 MILLIGRAM

REACTIONS (2)
  - Procedural intestinal perforation [Recovered/Resolved]
  - Urinary tract infection [Recovered/Resolved]

NARRATIVE: CASE EVENT DATE: 20231230
